FAERS Safety Report 5675389-6 (Version None)
Quarter: 2008Q2

REPORT INFORMATION
  Report Type: 
  Country: None (occurrence: None)
  Receive Date: 20080307
  Receipt Date: 20070316
  Transmission Date: 20081010
  Serious: Yes (Other)
  Sender: FDA-Public Use
  Company Number: US200703003677

PATIENT
  Age: 59 Year
  Sex: Female

DRUGS (5)
  1. GEMZAR [Suspect]
     Indication: ENDOMETRIAL CANCER
     Dosage: INTRAVENOUS
     Route: 042
     Dates: start: 20061218, end: 20070305
  2. CISPLATIN [Concomitant]
  3. ZOFRAN [Concomitant]
  4. BENADRYL (DIPHENHYDRAMINE HYDROCHLORIDE, PARACETAMOL, PSEUDOEPHEDRINE [Concomitant]
  5. TAGAMET [Concomitant]

REACTIONS (1)
  - GANGRENE [None]
